FAERS Safety Report 17617004 (Version 1)
Quarter: 2020Q2

REPORT INFORMATION
  Report Type: Spontaneous
  Country: US (occurrence: US)
  Receive Date: 20200402
  Receipt Date: 20200402
  Transmission Date: 20200713
  Serious: No
  Sender: FDA-Public Use
  Company Number: US-VERTEX PHARMACEUTICALS-2020-001000

PATIENT
  Age: 22 Year
  Sex: Male
  Weight: 75 kg

DRUGS (9)
  1. CREON [Concomitant]
     Active Substance: PANCRELIPASE AMYLASE\PANCRELIPASE LIPASE\PANCRELIPASE PROTEASE
  2. AZITHROMYCIN ANHYDROUS. [Concomitant]
     Active Substance: AZITHROMYCIN ANHYDROUS
  3. PULMOZYME [Concomitant]
     Active Substance: DORNASE ALFA
  4. URSODIOL. [Concomitant]
     Active Substance: URSODIOL
  5. TRIKAFTA [Suspect]
     Active Substance: ELEXACAFTOR\IVACAFTOR\TEZACAFTOR
     Dosage: UNKNOWN DOSAGE AND FREQUENCY
     Route: 048
     Dates: start: 202002
  6. HYPERSAL [Concomitant]
     Active Substance: SODIUM CHLORIDE
  7. TRIKAFTA [Suspect]
     Active Substance: ELEXACAFTOR\IVACAFTOR\TEZACAFTOR
     Indication: CYSTIC FIBROSIS
     Dosage: 2 TABS (100MG ELEXACAFTOR/50MG TEZACAFTOR/75MG IVACAFTOR)  AND 1 TAB (150MG IVACAFTOR), BID
     Route: 048
     Dates: start: 20191130, end: 20200108
  8. CAYSTON [Concomitant]
     Active Substance: AZTREONAM
  9. VITAMIN D3 [Concomitant]
     Active Substance: CHOLECALCIFEROL

REACTIONS (1)
  - Rash [Recovered/Resolved]

NARRATIVE: CASE EVENT DATE: 202001
